FAERS Safety Report 24841691 (Version 2)
Quarter: 2025Q4

REPORT INFORMATION
  Report Type: Report from Study
  Country: US (occurrence: US)
  Receive Date: 20250114
  Receipt Date: 20251024
  Transmission Date: 20260117
  Serious: Yes (Death, Other)
  Sender: MERZ
  Company Number: US-MERZ PHARMACEUTICALS, LLC-ACO_178628_2024

PATIENT

DRUGS (3)
  1. INBRIJA [Suspect]
     Active Substance: LEVODOPA
     Indication: Parkinson^s disease
     Dosage: 2 DOSAGE FORM (84MG), PRN (NOT TO EXCEED 5 DOSES PER DAY
     Dates: start: 20241218
  2. INBRIJA [Suspect]
     Active Substance: LEVODOPA
     Indication: On and off phenomenon
  3. RYTARY [Concomitant]
     Active Substance: CARBIDOPA\LEVODOPA
     Indication: Product used for unknown indication
     Dosage: 3 PILLS EVERY 4 HOURS FOR TOTAL OF 6 TIMES A DAY
     Route: 065

REACTIONS (5)
  - Death [Fatal]
  - Choking sensation [Not Recovered/Not Resolved]
  - Drug effect less than expected [Not Recovered/Not Resolved]
  - Device difficult to use [Not Recovered/Not Resolved]
  - Device issue [Not Recovered/Not Resolved]

NARRATIVE: CASE EVENT DATE: 20241218
